FAERS Safety Report 18451841 (Version 1)
Quarter: 2020Q4

REPORT INFORMATION
  Report Type: Spontaneous
  Country: US (occurrence: US)
  Receive Date: 20201030
  Receipt Date: 20201030
  Transmission Date: 20210114
  Serious: Yes (Other)
  Sender: FDA-Public Use
  Company Number: None

PATIENT
  Age: 59 Year
  Sex: Female
  Weight: 74.25 kg

DRUGS (4)
  1. METHYLPHENIDATE ER 36 MG TAB - WHITE ROUND-SHAPE IMPRINTED WITH TL 708 [Suspect]
     Active Substance: METHYLPHENIDATE
     Indication: ATTENTION DEFICIT HYPERACTIVITY DISORDER
     Dosage: ?          QUANTITY:1 TABLET(S);?
     Route: 048
     Dates: start: 20200213, end: 20200228
  2. FLONASE [Concomitant]
     Active Substance: FLUTICASONE PROPIONATE
  3. LINDORA WELLNESS CLINIC CAPSIO-LIN DIETARY SUPPLEMENT [Concomitant]
  4. LISINOPRIL. [Concomitant]
     Active Substance: LISINOPRIL

REACTIONS (4)
  - Headache [None]
  - Product substitution issue [None]
  - Feeling abnormal [None]
  - Disturbance in attention [None]

NARRATIVE: CASE EVENT DATE: 20200219
